FAERS Safety Report 10496496 (Version 1)
Quarter: 2014Q4

REPORT INFORMATION
  Report Type: Spontaneous
  Country: CA (occurrence: CA)
  Receive Date: 20141004
  Receipt Date: 20141004
  Transmission Date: 20150528
  Serious: Yes (Hospitalization)
  Sender: FDA-Public Use
  Company Number: CA-009507513-1410CAN000004

PATIENT
  Age: 57 Year
  Sex: Male

DRUGS (2)
  1. CALCIPOTRIENE. [Suspect]
     Active Substance: CALCIPOTRIENE
     Dosage: UNK
  2. HYDROCORTISONE. [Suspect]
     Active Substance: HYDROCORTISONE
     Indication: RASH
     Dosage: UNK
     Route: 061

REACTIONS (4)
  - Rash pruritic [Recovered/Resolved]
  - Mouth ulceration [Unknown]
  - Rash [Recovered/Resolved]
  - Abdominal distension [Unknown]
